FAERS Safety Report 16157769 (Version 2)
Quarter: 2022Q1

REPORT INFORMATION
  Report Type: Spontaneous
  Country: DE (occurrence: DE)
  Receive Date: 20190404
  Receipt Date: 20220216
  Transmission Date: 20220424
  Serious: Yes (Life-Threatening, Hospitalization)
  Sender: FDA-Public Use
  Company Number: DE- KIDSAFE3DCGMA-19180589

PATIENT
  Age: 12 Month
  Sex: Female
  Weight: 6 kg

DRUGS (2)
  1. LEVETIRACETAM [Suspect]
     Active Substance: LEVETIRACETAM
     Indication: Neonatal seizure
     Dosage: DAILY DOSE: 240 MG MILLGRAM(S) EVERY DAYS
  2. PHENOBARBITAL [Suspect]
     Active Substance: PHENOBARBITAL
     Indication: Neonatal seizure
     Dosage: 15 - 0 - 22.5 MG

REACTIONS (8)
  - Anticonvulsant drug level decreased [Unknown]
  - Hypertonia [Unknown]
  - Oxygen saturation decreased [Unknown]
  - Eye movement disorder [Unknown]
  - Resuscitation [Unknown]
  - Cyanosis [Unknown]
  - Seizure [Unknown]
  - Product prescribing error [Unknown]

NARRATIVE: CASE EVENT DATE: 20190204
